FAERS Safety Report 15256082 (Version 1)
Quarter: 2018Q3

REPORT INFORMATION
  Report Type: Spontaneous
  Country: JP (occurrence: JP)
  Receive Date: 20180808
  Receipt Date: 20180808
  Transmission Date: 20181010
  Serious: Yes (Other)
  Sender: FDA-Public Use
  Company Number: JP-PFIZER INC-2018313787

PATIENT
  Age: 78 Year
  Sex: Female
  Weight: 49.5 kg

DRUGS (2)
  1. PREDNISOLONE. [Suspect]
     Active Substance: PREDNISOLONE
     Dosage: 30 MG, DAILY FOR 7 DAYS
  2. METHYLPREDNISOLONE. [Suspect]
     Active Substance: METHYLPREDNISOLONE
     Dosage: 500 MG, DAILY FOR 3 DAYS

REACTIONS (4)
  - Cardiac disorder [Recovering/Resolving]
  - Abscess [Recovering/Resolving]
  - Condition aggravated [Recovering/Resolving]
  - Empyema [Recovering/Resolving]
